APPROVED DRUG PRODUCT: SERPASIL
Active Ingredient: RESERPINE
Strength: 0.2MG/4ML
Dosage Form/Route: ELIXIR;ORAL
Application: N009115 | Product #005
Applicant: NOVARTIS PHARMACEUTICALS CORP
Approved: Approved Prior to Jan 1, 1982 | RLD: No | RS: No | Type: DISCN